FAERS Safety Report 8017479-9 (Version None)
Quarter: 2011Q4

REPORT INFORMATION
  Report Type: 
  Country: None (occurrence: None)
  Receive Date: 20111228
  Receipt Date: 20111228
  Transmission Date: 20120403
  Serious: Yes (Other)
  Sender: FDA-Public Use
  Company Number: None

PATIENT

DRUGS (2)
  1. THIOTHIXENE HCL [Concomitant]
  2. KETOCONAZOLE [Suspect]
     Indication: FUNGAL INFECTION
     Dosage: 2X A DAY
     Route: 061
     Dates: start: 20111209

REACTIONS (2)
  - PARANOIA [None]
  - DELUSION [None]
